FAERS Safety Report 15147883 (Version 4)
Quarter: 2018Q3

REPORT INFORMATION
  Report Type: Spontaneous
  Country: SE (occurrence: SE)
  Receive Date: 20180716
  Receipt Date: 20180927
  Transmission Date: 20181010
  Serious: Yes (Life-Threatening, Hospitalization)
  Sender: FDA-Public Use
  Company Number: SE-CELGENEUS-SWE-20180702831

PATIENT
  Age: 86 Year
  Sex: Male

DRUGS (22)
  1. SPIRONOLACTONE. [Concomitant]
     Active Substance: SPIRONOLACTONE
     Indication: CARDIAC FAILURE
     Dosage: 50 MILLIGRAM
     Route: 048
     Dates: start: 20180710
  2. ALLOPURINOL. [Concomitant]
     Active Substance: ALLOPURINOL
     Indication: PROPHYLAXIS
     Route: 048
  3. AMOXCILLIN/CLAVULANIC ACID [Concomitant]
     Indication: UPPER RESPIRATORY TRACT INFECTION
     Dosage: 500/125 MG
     Route: 048
     Dates: start: 20180615
  4. ENALAPRIL [Concomitant]
     Active Substance: ENALAPRIL
     Indication: CARDIAC FAILURE
     Dosage: 2.5 MILLIGRAM
     Route: 048
     Dates: start: 20180706
  5. KALEORID [Concomitant]
     Active Substance: POTASSIUM CHLORIDE
     Indication: CARDIAC FAILURE
     Dosage: 4500 MILLIGRAM
     Route: 048
     Dates: start: 20180706, end: 20180709
  6. LASIX [Concomitant]
     Active Substance: FUROSEMIDE
     Indication: CARDIAC FAILURE
     Dosage: 60 MILLIGRAM
     Route: 048
     Dates: start: 20180710
  7. FLAGYL [Concomitant]
     Active Substance: METRONIDAZOLE\METRONIDAZOLE HYDROCHLORIDE
     Indication: CLOSTRIDIUM DIFFICILE INFECTION
     Dosage: 1200 MILLIGRAM
     Route: 048
     Dates: start: 20180705
  8. NOXAFIL [Concomitant]
     Active Substance: POSACONAZOLE
     Indication: INFECTION PROPHYLAXIS
     Dosage: 300 MILLIGRAM
     Route: 048
     Dates: start: 20180605
  9. VENETOCLAX. [Concomitant]
     Active Substance: VENETOCLAX
     Indication: ACUTE MYELOID LEUKAEMIA
     Route: 065
  10. ORUDIS [Concomitant]
     Active Substance: KETOPROFEN
     Indication: PROPHYLAXIS
     Route: 062
     Dates: start: 20180517
  11. VALACICLOVIR [Concomitant]
     Active Substance: VALACYCLOVIR HYDROCHLORIDE
     Indication: INFECTION PROPHYLAXIS
     Dosage: 500 MILLIGRAM
     Route: 048
     Dates: start: 20180605
  12. FRAGMIN [Concomitant]
     Active Substance: DALTEPARIN SODIUM
     Dosage: 5000 IU (INTERNATIONAL UNIT)
     Route: 058
     Dates: start: 20180605, end: 20180718
  13. XYLOPROCT [Concomitant]
     Indication: PROCTALGIA
     Dosage: 4 IU (INTERNATIONAL UNIT)
     Route: 054
     Dates: start: 20180511
  14. MOVICOL [Concomitant]
     Active Substance: POLYETHYLENE GLYCOL 3350\POTASSIUM CHLORIDE\SODIUM BICARBONATE\SODIUM CHLORIDE
     Indication: CONSTIPATION
     Route: 048
     Dates: start: 20180516
  15. FURIX [Concomitant]
     Active Substance: FUROSEMIDE
     Indication: CARDIAC FAILURE
     Dosage: 40 MILLIGRAM
     Route: 041
     Dates: start: 20180704
  16. AZACITIDINE. [Suspect]
     Active Substance: AZACITIDINE
     Indication: ACUTE MYELOID LEUKAEMIA
     Dosage: 30 MILLIGRAM
     Route: 058
     Dates: start: 20180517
  17. FRAGMIN [Concomitant]
     Active Substance: DALTEPARIN SODIUM
     Indication: PULMONARY EMBOLISM
     Dosage: 12500 IU (INTERNATIONAL UNIT)
     Route: 058
     Dates: start: 20180429, end: 20180604
  18. ALVEDON [Concomitant]
     Active Substance: ACETAMINOPHEN
     Indication: PNEUMONIA
     Route: 048
     Dates: start: 20180511
  19. ONDANSETRON [Concomitant]
     Active Substance: ONDANSETRON
     Indication: PROPHYLAXIS OF NAUSEA AND VOMITING
     Route: 048
     Dates: start: 20180517
  20. FLUCLOXACILLIN [Concomitant]
     Active Substance: FLUCLOXACILLIN
     Indication: THROMBOPHLEBITIS
     Dosage: 2250 MILLIGRAM
     Route: 048
     Dates: start: 20180521, end: 20180530
  21. CIPROFLOXACIN. [Concomitant]
     Active Substance: CIPROFLOXACIN
     Indication: INFECTION PROPHYLAXIS
     Dosage: 1000 MILLIGRAM
     Route: 048
     Dates: start: 20180605
  22. PREDNISOLONE. [Concomitant]
     Active Substance: PREDNISOLONE
     Indication: PRODUCT USED FOR UNKNOWN INDICATION
     Dosage: 40 MILLIGRAM
     Route: 048
     Dates: start: 20180710

REACTIONS (1)
  - Enterococcal infection [Not Recovered/Not Resolved]

NARRATIVE: CASE EVENT DATE: 20180704
